FAERS Safety Report 10283312 (Version 3)
Quarter: 2014Q4

REPORT INFORMATION
  Report Type: Spontaneous
  Country: US (occurrence: None)
  Receive Date: 20140703
  Receipt Date: 20141002
  Transmission Date: 20150528
  Serious: Yes (Death, Hospitalization, Other)
  Sender: FDA-Public Use
  Company Number: UNT-2014-000774

PATIENT
  Age: 30 Year
  Sex: Female
  Weight: 122.4 kg

DRUGS (4)
  1. REMODULIN [Suspect]
     Active Substance: TREPROSTINIL
     Indication: PULMONARY ARTERIAL HYPERTENSION
     Route: 058
     Dates: start: 20050406
  2. TRACLEER [Concomitant]
     Active Substance: BOSENTAN\BOSENTAN MONOHYDRATE
  3. COUMADIN /00014802/ (WARFARIN SODIUM) [Concomitant]
  4. ADCIRCA [Concomitant]
     Active Substance: TADALAFIL

REACTIONS (4)
  - Pneumonia [None]
  - Tracheostomy malfunction [None]
  - Respiratory failure [None]
  - Hypoxic-ischaemic encephalopathy [None]

NARRATIVE: CASE EVENT DATE: 2014
